FAERS Safety Report 19939507 (Version 3)
Quarter: 2021Q4

REPORT INFORMATION
  Report Type: Other
  Country: FR (occurrence: FR)
  Receive Date: 20211011
  Receipt Date: 20211026
  Transmission Date: 20220303
  Serious: Yes (Other)
  Sender: FDA-Public Use
  Company Number: FR-CELLTRION INC.-2021FR013634

PATIENT

DRUGS (53)
  1. TRASTUZUMAB [Suspect]
     Active Substance: TRASTUZUMAB
     Indication: Breast cancer
     Dosage: UNK
     Route: 065
     Dates: start: 20210525
  2. TRASTUZUMAB [Suspect]
     Active Substance: TRASTUZUMAB
     Dosage: UNK
     Route: 065
     Dates: start: 20210525
  3. TRASTUZUMAB [Suspect]
     Active Substance: TRASTUZUMAB
     Dosage: UNK
     Route: 065
     Dates: start: 20210525
  4. TRASTUZUMAB [Suspect]
     Active Substance: TRASTUZUMAB
     Dosage: UNK
     Route: 065
     Dates: start: 20210525
  5. TRASTUZUMAB [Suspect]
     Active Substance: TRASTUZUMAB
     Dosage: UNK
     Route: 065
     Dates: start: 20210727
  6. TRASTUZUMAB [Suspect]
     Active Substance: TRASTUZUMAB
     Dosage: UNK
     Route: 065
     Dates: start: 20210727
  7. TRASTUZUMAB [Suspect]
     Active Substance: TRASTUZUMAB
     Dosage: UNK
     Route: 065
     Dates: start: 20210727
  8. TRASTUZUMAB [Suspect]
     Active Substance: TRASTUZUMAB
     Dosage: UNK
     Route: 065
     Dates: start: 20210727
  9. TRASTUZUMAB [Suspect]
     Active Substance: TRASTUZUMAB
     Dosage: 378MG, CURE 3 DAY 1
     Route: 065
     Dates: start: 20210706
  10. TRASTUZUMAB [Suspect]
     Active Substance: TRASTUZUMAB
     Dosage: 378MG, CURE 3 DAY 1
     Route: 065
     Dates: start: 20210706
  11. TRASTUZUMAB [Suspect]
     Active Substance: TRASTUZUMAB
     Dosage: 378MG, CURE 3 DAY 1
     Route: 065
     Dates: start: 20210706
  12. TRASTUZUMAB [Suspect]
     Active Substance: TRASTUZUMAB
     Dosage: 378MG, CURE 3 DAY 1
     Route: 065
     Dates: start: 20210706
  13. EPIRUBICIN [Suspect]
     Active Substance: EPIRUBICIN
     Indication: Breast cancer
     Dosage: UNK
     Route: 065
     Dates: start: 20210202
  14. EPIRUBICIN [Suspect]
     Active Substance: EPIRUBICIN
     Dosage: UNK
     Route: 065
     Dates: start: 20210202
  15. PACLITAXEL [Suspect]
     Active Substance: PACLITAXEL
     Indication: Breast cancer
     Dosage: 100MG/16.7ML CURE 3 DAY 1, 138MG (PHARMACEUTICAL DOSAGE FORM: SOLUTION TO DILUTE FOR INFUSION)
     Route: 041
     Dates: start: 20210706
  16. PACLITAXEL [Suspect]
     Active Substance: PACLITAXEL
     Dosage: 100MG/16.7ML CURE 3 DAY 1, 138MG (PHARMACEUTICAL DOSAGE FORM: SOLUTION TO DILUTE FOR INFUSION)
     Route: 041
     Dates: start: 20210706
  17. PACLITAXEL [Suspect]
     Active Substance: PACLITAXEL
     Dosage: 100MG/16.7ML CURE 3 DAY 1, 138MG (PHARMACEUTICAL DOSAGE FORM: SOLUTION TO DILUTE FOR INFUSION)
     Route: 041
     Dates: start: 20210706
  18. PACLITAXEL [Suspect]
     Active Substance: PACLITAXEL
     Dosage: 100MG/16.7ML CURE 3 DAY 1, 138MG (PHARMACEUTICAL DOSAGE FORM: SOLUTION TO DILUTE FOR INFUSION)
     Route: 041
     Dates: start: 20210706
  19. PACLITAXEL [Suspect]
     Active Substance: PACLITAXEL
     Dosage: 100MG/16.7ML CURE 1 DAY 1 (PHARMACEUTICAL DOSAGE FORM: SOLUTION TO DILUTE FOR INFUSION)
     Route: 041
     Dates: start: 20210525
  20. PACLITAXEL [Suspect]
     Active Substance: PACLITAXEL
     Dosage: 100MG/16.7ML CURE 1 DAY 1 (PHARMACEUTICAL DOSAGE FORM: SOLUTION TO DILUTE FOR INFUSION)
     Route: 041
     Dates: start: 20210525
  21. PACLITAXEL [Suspect]
     Active Substance: PACLITAXEL
     Dosage: 100MG/16.7ML CURE 1 DAY 1 (PHARMACEUTICAL DOSAGE FORM: SOLUTION TO DILUTE FOR INFUSION)
     Route: 041
     Dates: start: 20210525
  22. PACLITAXEL [Suspect]
     Active Substance: PACLITAXEL
     Dosage: 100MG/16.7ML CURE 1 DAY 1 (PHARMACEUTICAL DOSAGE FORM: SOLUTION TO DILUTE FOR INFUSION)
     Route: 041
     Dates: start: 20210525
  23. PACLITAXEL [Suspect]
     Active Substance: PACLITAXEL
     Dosage: 100MG/16.7ML CURE 3 DAY 15, 98,4MG (PHARMACEUTICAL DOSAGE FORM: SOLUTION TO DILUTE FOR INFUSION)
     Route: 041
     Dates: start: 20210720, end: 20210727
  24. PACLITAXEL [Suspect]
     Active Substance: PACLITAXEL
     Dosage: 100MG/16.7ML CURE 3 DAY 15, 98,4MG (PHARMACEUTICAL DOSAGE FORM: SOLUTION TO DILUTE FOR INFUSION)
     Route: 041
     Dates: start: 20210720, end: 20210727
  25. PACLITAXEL [Suspect]
     Active Substance: PACLITAXEL
     Dosage: 100MG/16.7ML CURE 3 DAY 15, 98,4MG (PHARMACEUTICAL DOSAGE FORM: SOLUTION TO DILUTE FOR INFUSION)
     Route: 041
     Dates: start: 20210720, end: 20210727
  26. PACLITAXEL [Suspect]
     Active Substance: PACLITAXEL
     Dosage: 100MG/16.7ML CURE 3 DAY 15, 98,4MG (PHARMACEUTICAL DOSAGE FORM: SOLUTION TO DILUTE FOR INFUSION)
     Route: 041
     Dates: start: 20210720, end: 20210727
  27. PACLITAXEL [Suspect]
     Active Substance: PACLITAXEL
     Indication: Breast cancer
     Dosage: 100MG/16.7ML
     Route: 065
     Dates: start: 20210202
  28. PACLITAXEL [Suspect]
     Active Substance: PACLITAXEL
     Dosage: 100MG/16.7ML
     Route: 065
     Dates: start: 20210202
  29. PACLITAXEL [Suspect]
     Active Substance: PACLITAXEL
     Dosage: 100MG/16.7ML
     Route: 065
     Dates: start: 20210202
  30. PACLITAXEL [Suspect]
     Active Substance: PACLITAXEL
     Dosage: 100MG/16.7ML
     Route: 065
     Dates: start: 20210202
  31. PACLITAXEL [Suspect]
     Active Substance: PACLITAXEL
     Dosage: 100MG/16.7ML CURE 2 DAY 15, 138MG
     Route: 065
     Dates: start: 20210622
  32. PACLITAXEL [Suspect]
     Active Substance: PACLITAXEL
     Dosage: 100MG/16.7ML CURE 2 DAY 15, 138MG
     Route: 065
     Dates: start: 20210622
  33. PACLITAXEL [Suspect]
     Active Substance: PACLITAXEL
     Dosage: 100MG/16.7ML CURE 2 DAY 15, 138MG
     Route: 065
     Dates: start: 20210622
  34. PACLITAXEL [Suspect]
     Active Substance: PACLITAXEL
     Dosage: 100MG/16.7ML CURE 2 DAY 15, 138MG
     Route: 065
     Dates: start: 20210622
  35. PACLITAXEL [Suspect]
     Active Substance: PACLITAXEL
     Dosage: 100MG/16.7MLCURE 3 DAY 8, 138MG
     Route: 065
     Dates: start: 20210713
  36. PACLITAXEL [Suspect]
     Active Substance: PACLITAXEL
     Dosage: 100MG/16.7MLCURE 3 DAY 8, 138MG
     Route: 065
     Dates: start: 20210713
  37. PACLITAXEL [Suspect]
     Active Substance: PACLITAXEL
     Dosage: 100MG/16.7MLCURE 3 DAY 8, 138MG
     Route: 065
     Dates: start: 20210713
  38. PACLITAXEL [Suspect]
     Active Substance: PACLITAXEL
     Dosage: 100MG/16.7MLCURE 3 DAY 8, 138MG
     Route: 065
     Dates: start: 20210713
  39. CYTARABINE [Suspect]
     Active Substance: CYTARABINE
     Indication: Breast cancer
     Dosage: UNK
     Route: 065
     Dates: start: 20210202
  40. CYTARABINE [Suspect]
     Active Substance: CYTARABINE
     Dosage: UNK
     Route: 065
     Dates: start: 20210202
  41. CYTARABINE [Suspect]
     Active Substance: CYTARABINE
     Dosage: UNK
     Route: 065
     Dates: start: 20210202
  42. PERTUZUMAB [Suspect]
     Active Substance: PERTUZUMAB
     Indication: Breast cancer
     Dosage: CURE 3 DAY 1, 420MG
     Route: 065
     Dates: start: 20210706
  43. PERTUZUMAB [Suspect]
     Active Substance: PERTUZUMAB
     Dosage: CURE 3 DAY 1, 420MG
     Route: 065
     Dates: start: 20210706
  44. PERTUZUMAB [Suspect]
     Active Substance: PERTUZUMAB
     Dosage: CURE 3 DAY 1, 420MG
     Route: 065
     Dates: start: 20210706
  45. PERTUZUMAB [Suspect]
     Active Substance: PERTUZUMAB
     Dosage: CURE 3 DAY 1, 420MG
     Route: 065
     Dates: start: 20210706
  46. PERTUZUMAB [Suspect]
     Active Substance: PERTUZUMAB
     Dosage: UNK
     Route: 065
     Dates: start: 20210727
  47. PERTUZUMAB [Suspect]
     Active Substance: PERTUZUMAB
     Dosage: UNK
     Route: 065
     Dates: start: 20210727
  48. PERTUZUMAB [Suspect]
     Active Substance: PERTUZUMAB
     Dosage: UNK
     Route: 065
     Dates: start: 20210727
  49. PERTUZUMAB [Suspect]
     Active Substance: PERTUZUMAB
     Dosage: UNK
     Route: 065
     Dates: start: 20210727
  50. PERTUZUMAB [Suspect]
     Active Substance: PERTUZUMAB
     Dosage: UNK
     Route: 065
     Dates: start: 20210525
  51. PERTUZUMAB [Suspect]
     Active Substance: PERTUZUMAB
     Dosage: UNK
     Route: 065
     Dates: start: 20210525
  52. PERTUZUMAB [Suspect]
     Active Substance: PERTUZUMAB
     Dosage: UNK
     Route: 065
     Dates: start: 20210525
  53. PERTUZUMAB [Suspect]
     Active Substance: PERTUZUMAB
     Dosage: UNK
     Route: 065
     Dates: start: 20210525

REACTIONS (9)
  - Skin abrasion [Unknown]
  - Oesophagitis [Unknown]
  - Neuropathy peripheral [Not Recovered/Not Resolved]
  - Diarrhoea [Unknown]
  - Epistaxis [Recovered/Resolved]
  - Constipation [Unknown]
  - Oedema peripheral [Unknown]
  - Conjunctivitis [Unknown]
  - Paraesthesia [Unknown]

NARRATIVE: CASE EVENT DATE: 20210622
